FAERS Safety Report 25901424 (Version 2)
Quarter: 2025Q4

REPORT INFORMATION
  Report Type: Spontaneous
  Country: JP (occurrence: JP)
  Receive Date: 20251009
  Receipt Date: 20251107
  Transmission Date: 20260118
  Serious: No
  Sender: PFIZER
  Company Number: JP-PFIZER INC-202500194307

PATIENT
  Sex: Female

DRUGS (1)
  1. ENBREL [Suspect]
     Active Substance: ETANERCEPT
     Dosage: UNK

REACTIONS (1)
  - Needle issue [Unknown]

NARRATIVE: CASE EVENT DATE: 20250101
